FAERS Safety Report 14676768 (Version 1)
Quarter: 2018Q1

REPORT INFORMATION
  Report Type: Spontaneous
  Country: US (occurrence: US)
  Receive Date: 20180324
  Receipt Date: 20180324
  Transmission Date: 20180509
  Serious: No
  Sender: FDA-Public Use
  Company Number: US-SHIRE-US201810327

PATIENT
  Sex: Female

DRUGS (3)
  1. LAMOTRIGINE. [Concomitant]
     Active Substance: LAMOTRIGINE
     Indication: MOOD ALTERED
     Dosage: 25 MG, UNK
     Route: 065
  2. VYVANSE [Suspect]
     Active Substance: LISDEXAMFETAMINE DIMESYLATE
     Indication: ATTENTION DEFICIT/HYPERACTIVITY DISORDER
     Dosage: 12 MG, 1X/DAY:QD
     Route: 048
  3. MYDAYIS [Suspect]
     Active Substance: AMPHETAMINE ASPARTATE\AMPHETAMINE SULFATE\DEXTROAMPHETAMINE SACCHARATE\DEXTROAMPHETAMINE SULFATE
     Indication: ATTENTION DEFICIT/HYPERACTIVITY DISORDER
     Dosage: 12 MG, 1X/DAY:QD
     Route: 048

REACTIONS (6)
  - Unevaluable event [Not Recovered/Not Resolved]
  - Head discomfort [Not Recovered/Not Resolved]
  - Nervousness [Not Recovered/Not Resolved]
  - Agitation [Not Recovered/Not Resolved]
  - Dizziness [Not Recovered/Not Resolved]
  - Overdose [Not Recovered/Not Resolved]
